FAERS Safety Report 7802768-0 (Version None)
Quarter: 2011Q4

REPORT INFORMATION
  Report Type: 
  Country: None (occurrence: None)
  Receive Date: 20111007
  Receipt Date: 20110927
  Transmission Date: 20120403
  Serious: Yes (Hospitalization)
  Sender: FDA-Public Use
  Company Number: CN-US-EMD SERONO, INC.-7085786

PATIENT
  Age: 16 Year
  Sex: Female
  Weight: 35 kg

DRUGS (1)
  1. SAIZEN [Suspect]
     Indication: TURNER'S SYNDROME
     Route: 058
     Dates: start: 20110828

REACTIONS (1)
  - URTICARIA [None]
